FAERS Safety Report 6388863-4 (Version None)
Quarter: 2009Q4

REPORT INFORMATION
  Report Type: 
  Country: None (occurrence: None)
  Receive Date: 20091005
  Receipt Date: 20090929
  Transmission Date: 20100525
  Serious: Yes (Other)
  Sender: FDA-Public Use
  Company Number: US-AMGEN-QUU365874

PATIENT
  Sex: Male
  Weight: 75 kg

DRUGS (15)
  1. EPOGEN [Suspect]
     Indication: DIALYSIS
     Dates: start: 20070801
  2. EPOGEN [Suspect]
     Indication: RENAL FAILURE CHRONIC
  3. CALCITRIOL [Concomitant]
     Dates: start: 20090122
  4. CELLCEPT [Concomitant]
     Route: 048
     Dates: start: 20010101
  5. CLONIDINE [Concomitant]
     Route: 048
     Dates: start: 20090122
  6. LOVAZA [Concomitant]
     Dates: start: 20090122
  7. HUMALOG [Concomitant]
     Dates: start: 20090122
  8. HUMULIN R [Concomitant]
     Dates: start: 20090122
  9. HYDRALAZINE [Concomitant]
     Dates: start: 20090122
  10. MINIPRESS [Concomitant]
     Route: 048
     Dates: start: 20070913
  11. NEPHRO-VITE [Concomitant]
     Route: 048
     Dates: start: 20070913
  12. OMEPRAZOLE [Concomitant]
     Dates: start: 20090526
  13. RENAGEL [Concomitant]
     Route: 048
     Dates: start: 20090122
  14. TEMAZEPAM [Concomitant]
     Route: 048
     Dates: start: 20090526
  15. URSODIOL [Concomitant]
     Route: 048
     Dates: start: 20070913

REACTIONS (1)
  - DRUG INEFFECTIVE [None]
